FAERS Safety Report 4302035-6 (Version None)
Quarter: 2004Q1

REPORT INFORMATION
  Report Type: 
  Country: None (occurrence: None)
  Receive Date: 20040223
  Receipt Date: 20040120
  Transmission Date: 20041129
  Serious: Yes (Hospitalization)
  Sender: FDA-Public Use
  Company Number: FR-ROCHE-356388

PATIENT
  Age: 56 Year
  Sex: Female
  Weight: 86 kg

DRUGS (5)
  1. CAPECITABINE [Suspect]
     Indication: BREAST CANCER
     Dosage: INTERMITTENT THERAPY ADMINISTERED ON DAYS 1 TO 14 OF A 21 DAY CYCLE
     Route: 048
     Dates: start: 20031107
  2. DOCETAXEL [Suspect]
     Indication: BREAST CANCER
     Dosage: ADMINISTERED ON DAY 1 OF A 21 DAY CYCLE
     Route: 042
     Dates: start: 20031107
  3. ZOFRAN [Concomitant]
     Indication: PROPHYLAXIS OF NAUSEA AND VOMITING
     Dates: start: 20031107, end: 20031107
  4. TRANXENE [Concomitant]
     Indication: PROPHYLAXIS
     Route: 048
     Dates: start: 20031107
  5. CORTANCYL [Concomitant]
     Indication: PROPHYLAXIS
     Route: 048
     Dates: start: 20031107

REACTIONS (3)
  - DYSPNOEA [None]
  - JUGULAR VEIN THROMBOSIS [None]
  - STAPHYLOCOCCAL INFECTION [None]
